FAERS Safety Report 8084235-5 (Version None)
Quarter: 2012Q1

REPORT INFORMATION
  Report Type: 
  Country: None (occurrence: None)
  Receive Date: 20120128
  Receipt Date: 20110307
  Transmission Date: 20120608
  Serious: No
  Sender: FDA-Public Use
  Company Number: US-ABBOTT-11P-163-0709635-00

PATIENT
  Age: 47 Year
  Sex: Female

DRUGS (9)
  1. FOLIC ACID [Concomitant]
     Indication: PRODUCT USED FOR UNKNOWN INDICATION
     Dosage: IN CONJUNCTION WITH METHOTREXATE
  2. SUFULEXIN [Concomitant]
     Indication: PRODUCT USED FOR UNKNOWN INDICATION
  3. HUMIRA [Suspect]
     Indication: RHEUMATOID ARTHRITIS
     Dates: start: 20110101
  4. VICODIN [Concomitant]
     Indication: ARTHRALGIA
     Dosage: 5/500 EVERY 4-6 HOURS AS NEEDED
  5. CYMBALTA [Concomitant]
     Indication: RHEUMATOID ARTHRITIS
  6. METHOTREXATE [Concomitant]
     Indication: PSORIATIC ARTHROPATHY
  7. OXAPROZEN [Concomitant]
     Indication: INFLAMMATION
  8. TANZAPAN [Concomitant]
     Indication: INSOMNIA
     Dosage: AT BEDTIME
  9. METHOTREXATE [Concomitant]
     Indication: RHEUMATOID ARTHRITIS

REACTIONS (2)
  - ASTHMA [None]
  - RHINORRHOEA [None]
